FAERS Safety Report 8478785-7 (Version None)
Quarter: 2012Q2

REPORT INFORMATION
  Report Type: 
  Country: None (occurrence: None)
  Receive Date: 20120629
  Receipt Date: 20120627
  Transmission Date: 20120825
  Serious: Yes (Death)
  Sender: FDA-Public Use
  Company Number: US-ROCHE-1063429

PATIENT
  Sex: Male

DRUGS (1)
  1. XELODA [Suspect]
     Indication: COLORECTAL CANCER METASTATIC
     Dosage: DOSE: 1500 MG IN MORNING AND 1000 MG IN EVENING
     Route: 048
     Dates: start: 20120301, end: 20120501

REACTIONS (3)
  - DEATH [None]
  - DIARRHOEA [None]
  - ERYTHEMA [None]
